FAERS Safety Report 19029135 (Version 3)
Quarter: 2021Q2

REPORT INFORMATION
  Report Type: Spontaneous
  Country: DE (occurrence: DE)
  Receive Date: 20210318
  Receipt Date: 20210419
  Transmission Date: 20210717
  Serious: Yes (Hospitalization, Other)
  Sender: FDA-Public Use
  Company Number: DE-ALLERGAN-2111528US

PATIENT
  Sex: Female

DRUGS (5)
  1. CITALOPRAM HYDROBROMIDE ? BP [Suspect]
     Active Substance: CITALOPRAM HYDROBROMIDE
     Indication: PRODUCT USED FOR UNKNOWN INDICATION
     Dosage: 30 MG, QAM
     Route: 065
  2. TAVOR [Concomitant]
     Dosage: REQUIREMENT
     Route: 065
  3. ZOPICLON [Concomitant]
     Active Substance: ZOPICLONE
     Dosage: REQUIREMENT
     Route: 065
  4. LEVOTHYROXINE SODIUM. [Concomitant]
     Active Substance: LEVOTHYROXINE SODIUM
     Dosage: 150 ?G, QAM
     Route: 065
  5. ACETYLSALICYLSAEURE [Interacting]
     Active Substance: ASPIRIN
     Indication: PRODUCT USED FOR UNKNOWN INDICATION
     Dosage: REGULAR USE BECAUSE OF PAIN ASSOCIATED WITH PNEUMONIA
     Route: 065
     Dates: start: 202101

REACTIONS (3)
  - Haematochezia [Unknown]
  - Labelled drug-drug interaction medication error [Unknown]
  - Product monitoring error [Unknown]

NARRATIVE: CASE EVENT DATE: 20210101
